FAERS Safety Report 10983715 (Version 1)
Quarter: 2015Q2

REPORT INFORMATION
  Report Type: Spontaneous
  Country: JP (occurrence: None)
  Receive Date: 20150401
  Receipt Date: 20150401
  Transmission Date: 20150821
  Serious: No
  Sender: FDA-Public Use
  Company Number: JP2015JPN008904

PATIENT
  Age: 39 Year
  Sex: Female

DRUGS (4)
  1. TIVICAY [Suspect]
     Active Substance: DOLUTEGRAVIR SODIUM
     Indication: HIV INFECTION
     Route: 048
     Dates: start: 20141030
  2. PL (CAFFEINE + METHYLENEDISALICYLIC ACID + PARACETAMOL + PROMETHAZINE + SALICYLAMIDE) [Concomitant]
  3. ZOLPIDEM TARTRATE OD (ZOLPIDEM TARTRATE) [Concomitant]
  4. TRUVADA [Concomitant]
     Active Substance: EMTRICITABINE\TENOFOVIR DISOPROXIL FUMARATE

REACTIONS (1)
  - Muscle spasms [None]

NARRATIVE: CASE EVENT DATE: 20141101
